FAERS Safety Report 4294448-6 (Version None)
Quarter: 2004Q1

REPORT INFORMATION
  Report Type: 
  Country: None (occurrence: None)
  Receive Date: 20040211
  Receipt Date: 20040202
  Transmission Date: 20041129
  Serious: Yes (Death)
  Sender: FDA-Public Use
  Company Number: 2003AP03600

PATIENT
  Age: 75 Year
  Sex: Male

DRUGS (9)
  1. IRESSA [Suspect]
     Indication: LUNG ADENOCARCINOMA
     Dosage: 250 MG DAILY PO
     Route: 048
     Dates: start: 20030923, end: 20031005
  2. AMINOTRIPA 1 [Suspect]
     Indication: FLUID REPLACEMENT
     Dates: start: 20030917
  3. BIOFERMIN [Concomitant]
  4. MVI 3 [Concomitant]
  5. HUMULIN [Concomitant]
  6. LASIX [Concomitant]
  7. MS CONTIN [Concomitant]
  8. PARAPLATIN [Concomitant]
  9. DOCETAXEL [Concomitant]

REACTIONS (6)
  - BRONCHOPNEUMONIA [None]
  - CONDITION AGGRAVATED [None]
  - HEPATIC FUNCTION ABNORMAL [None]
  - INTERSTITIAL LUNG DISEASE [None]
  - PLEURAL EFFUSION [None]
  - RESPIRATORY FAILURE [None]
